FAERS Safety Report 7526282-5 (Version None)
Quarter: 2011Q2

REPORT INFORMATION
  Report Type: 
  Country: None (occurrence: None)
  Receive Date: 20110606
  Receipt Date: 20110530
  Transmission Date: 20111010
  Serious: Yes (Other)
  Sender: FDA-Public Use
  Company Number: CA-PFIZER INC-2011117343

PATIENT
  Age: 59 Year
  Sex: Female

DRUGS (6)
  1. PANTOPRAZOLE SODIUM [Concomitant]
     Dosage: UNK
  2. METOPROLOL SUCCINATE [Concomitant]
     Dosage: UNK
  3. CALCIUM [Concomitant]
     Dosage: UNK
  4. DOMPERIDONE [Concomitant]
     Dosage: UNK
  5. XALATAN [Suspect]
     Indication: GLAUCOMA
     Dosage: 1 GTT, 1X/DAY AT BEDTIME
     Route: 047
     Dates: start: 20100101
  6. LIORESAL [Concomitant]
     Dosage: UNK

REACTIONS (4)
  - EYE PRURITUS [None]
  - EYE PAIN [None]
  - VISUAL ACUITY REDUCED [None]
  - VISION BLURRED [None]
